FAERS Safety Report 8325099-1 (Version None)
Quarter: 2012Q2

REPORT INFORMATION
  Report Type: 
  Country: None (occurrence: None)
  Receive Date: 20120501
  Receipt Date: 20120417
  Transmission Date: 20120825
  Serious: Yes (Other)
  Sender: FDA-Public Use
  Company Number: FR-MYLANLABS-2012S1008357

PATIENT
  Age: 78 Year
  Sex: Male

DRUGS (3)
  1. FLUINDIONE [Suspect]
     Route: 065
  2. DICLOFENAC [Suspect]
     Route: 065
  3. DIGOXIN [Suspect]
     Route: 065

REACTIONS (1)
  - DRUG RASH WITH EOSINOPHILIA AND SYSTEMIC SYMPTOMS [None]
